FAERS Safety Report 5594169-3 (Version None)
Quarter: 2008Q1

REPORT INFORMATION
  Report Type: 
  Country: None (occurrence: None)
  Receive Date: 20080115
  Receipt Date: 20080107
  Transmission Date: 20080703
  Serious: Yes (Hospitalization)
  Sender: FDA-Public Use
  Company Number: L08-USA-00071-01

PATIENT
  Age: 64 Year
  Sex: Male

DRUGS (10)
  1. DILTIAZEM HCL [Suspect]
  2. SIMVASTATIN [Suspect]
     Indication: HYPERLIPIDAEMIA
  3. SIMVASTATIN [Suspect]
     Indication: HYPERLIPIDAEMIA
  4. CYCLOSPORINE [Suspect]
  5. FUROSEMIDE [Suspect]
  6. ANGIOTENSIN RECEPTOR ANTAGONIST [Suspect]
  7. MYCOPHENOLATE MOFETIL [Concomitant]
  8. PREDNISONE TAB [Concomitant]
  9. ASPIRIN [Concomitant]
  10. INSULIN [Concomitant]

REACTIONS (12)
  - ABASIA [None]
  - BLOOD CHLORIDE DECREASED [None]
  - BLOOD GLUCOSE INCREASED [None]
  - BLOOD PHOSPHORUS INCREASED [None]
  - BLOOD PRESSURE SYSTOLIC INCREASED [None]
  - BLOOD SODIUM DECREASED [None]
  - CARBON DIOXIDE DECREASED [None]
  - DIARRHOEA [None]
  - OEDEMA PERIPHERAL [None]
  - RENAL FAILURE ACUTE [None]
  - RHABDOMYOLYSIS [None]
  - WEIGHT INCREASED [None]
